FAERS Safety Report 14138160 (Version 2)
Quarter: 2017Q4

REPORT INFORMATION
  Report Type: Spontaneous
  Country: US (occurrence: US)
  Receive Date: 20171027
  Receipt Date: 20171128
  Transmission Date: 20180321
  Serious: No
  Sender: FDA-Public Use
  Company Number: US-LEXICON PHARMACEUTICALS, INC-17-1606-00951

PATIENT
  Age: 73 Year
  Sex: Female

DRUGS (19)
  1. CELEBREX [Concomitant]
     Active Substance: CELECOXIB
  2. AVAPRO [Concomitant]
     Active Substance: IRBESARTAN
  3. PRILOSEC [Concomitant]
     Active Substance: OMEPRAZOLE MAGNESIUM
  4. FIORICET [Concomitant]
     Active Substance: ACETAMINOPHEN\BUTALBITAL\CAFFEINE
  5. ROBAXIN [Concomitant]
     Active Substance: METHOCARBAMOL
  6. TELOTRISTAT ETHYL [Suspect]
     Active Substance: TELOTRISTAT ETHYL
     Indication: CARCINOID SYNDROME
     Route: 048
     Dates: start: 20170708
  7. LOMOTIL [Concomitant]
     Active Substance: ATROPINE SULFATE\DIPHENOXYLATE HYDROCHLORIDE
  8. ANUSOL-HC [Concomitant]
  9. LASIX [Concomitant]
     Active Substance: FUROSEMIDE
  10. BENZOCAINE. [Concomitant]
     Active Substance: BENZOCAINE
  11. CARDURA [Concomitant]
     Active Substance: DOXAZOSIN MESYLATE
  12. ALEVE [Concomitant]
     Active Substance: NAPROXEN SODIUM
  13. FOLIC ACID. [Concomitant]
     Active Substance: FOLIC ACID
  14. QUESTRAN [Concomitant]
     Active Substance: CHOLESTYRAMINE
  15. NORVASC [Concomitant]
     Active Substance: AMLODIPINE BESYLATE
  16. LIPITOR [Concomitant]
     Active Substance: ATORVASTATIN CALCIUM
  17. SANDOSTATIN [Concomitant]
     Active Substance: OCTREOTIDE ACETATE
  18. HYDROCORTISONE. [Concomitant]
     Active Substance: HYDROCORTISONE
  19. LIDOCAINE. [Concomitant]
     Active Substance: LIDOCAINE

REACTIONS (1)
  - Hot flush [Not Recovered/Not Resolved]

NARRATIVE: CASE EVENT DATE: 20170905
